FAERS Safety Report 7470239-X (Version None)
Quarter: 2011Q2

REPORT INFORMATION
  Report Type: 
  Country: None (occurrence: None)
  Receive Date: 20110510
  Receipt Date: 20110503
  Transmission Date: 20111010
  Serious: Yes (Other)
  Sender: FDA-Public Use
  Company Number: PHHY2011GB36988

PATIENT
  Age: 82 Year
  Sex: Male

DRUGS (10)
  1. ENALAPRIL [Concomitant]
     Dosage: UNK
     Dates: end: 20110301
  2. OMEPRAZOLE [Concomitant]
     Dosage: 40 MG, QD
  3. BENDROFLUAZIDE [Concomitant]
     Dosage: UNK
     Dates: end: 20110301
  4. ATENOLOL [Concomitant]
     Dosage: 50 MG, QD
  5. CODEINE PHOSPHATE [Concomitant]
     Dosage: 30 MG, QID
  6. SIMVASTATIN [Concomitant]
  7. ALENDRONATE SODIUM [Suspect]
     Indication: OSTEOPOROSIS
     Dosage: 70 MG, UNK
     Route: 048
     Dates: start: 20110331, end: 20110408
  8. ADCAL-D3 [Concomitant]
  9. ASPIRIN [Concomitant]
  10. ACETAMINOPHEN [Concomitant]
     Dosage: 1 G, QID

REACTIONS (1)
  - RECTAL HAEMORRHAGE [None]
